FAERS Safety Report 6248083-0 (Version None)
Quarter: 2009Q2

REPORT INFORMATION
  Report Type: 
  Country: None (occurrence: None)
  Receive Date: 20090629
  Receipt Date: 20071130
  Transmission Date: 20091009
  Serious: Yes (Hospitalization)
  Sender: FDA-Public Use
  Company Number: US-ASTRAZENECA-2007UW13913

PATIENT
  Age: 20384 Day
  Sex: Male
  Weight: 104.3 kg

DRUGS (11)
  1. SEROQUEL [Suspect]
     Indication: SLEEP DISORDER
     Dosage: 25-50 MG
     Route: 048
     Dates: start: 20001120
  2. SEROQUEL [Suspect]
     Indication: POST-TRAUMATIC STRESS DISORDER
     Dosage: 25-50 MG
     Route: 048
     Dates: start: 20001120
  3. SEROQUEL [Suspect]
     Route: 048
     Dates: start: 20010101
  4. SEROQUEL [Suspect]
     Route: 048
     Dates: start: 20010101
  5. GEMFIBROZIL [Concomitant]
     Dates: start: 20001120
  6. NEFAZODONE HCL [Concomitant]
     Dates: start: 20001120
  7. ASPIRIN [Concomitant]
     Dosage: 325-800 MG
     Route: 048
     Dates: start: 20030523
  8. PLAVIX [Concomitant]
     Dates: start: 20060718
  9. ZOCOR [Concomitant]
     Dates: start: 20030523
  10. TRAZODONE HCL [Concomitant]
     Dates: start: 20030523
  11. METOPROLOL SUCCINATE [Concomitant]
     Dates: start: 20030523

REACTIONS (4)
  - BLOOD CHOLESTEROL INCREASED [None]
  - BLOOD TRIGLYCERIDES INCREASED [None]
  - STENT PLACEMENT [None]
  - TYPE 2 DIABETES MELLITUS [None]
